FAERS Safety Report 13337084 (Version 1)
Quarter: 2017Q1

REPORT INFORMATION
  Report Type: Spontaneous
  Country: US (occurrence: US)
  Receive Date: 20170314
  Receipt Date: 20170314
  Transmission Date: 20170428
  Serious: Yes (Other)
  Sender: FDA-Public Use
  Company Number: US-JAZZ-2016-US-010244

PATIENT
  Age: 26 Year
  Sex: Male

DRUGS (1)
  1. CLOZAPINE. [Suspect]
     Active Substance: CLOZAPINE
     Indication: SCHIZOPHRENIA
     Dosage: 12.5-75 MG, QD
     Route: 048

REACTIONS (6)
  - Pneumonia aspiration [Unknown]
  - Salivary hypersecretion [Unknown]
  - Sedation [Unknown]
  - Tachycardia [Unknown]
  - Mental status changes [Unknown]
  - Headache [Unknown]
